FAERS Safety Report 25586068 (Version 1)
Quarter: 2025Q3

REPORT INFORMATION
  Report Type: Spontaneous
  Country: EU (occurrence: EU)
  Receive Date: 20250721
  Receipt Date: 20250721
  Transmission Date: 20251021
  Serious: Yes (Death, Other)
  Sender: MYLAN
  Company Number: EU-SUN PHARMACEUTICAL INDUSTRIES LTD-2025RR-514094

PATIENT
  Age: 51 Year
  Sex: Female

DRUGS (32)
  1. GEMCITABINE [Suspect]
     Active Substance: GEMCITABINE
     Indication: Ductal adenocarcinoma of pancreas
  2. GEMCITABINE [Suspect]
     Active Substance: GEMCITABINE
  3. GEMCITABINE [Suspect]
     Active Substance: GEMCITABINE
     Route: 065
  4. GEMCITABINE [Suspect]
     Active Substance: GEMCITABINE
     Route: 065
  5. GEMCITABINE [Suspect]
     Active Substance: GEMCITABINE
  6. GEMCITABINE [Suspect]
     Active Substance: GEMCITABINE
  7. GEMCITABINE [Suspect]
     Active Substance: GEMCITABINE
     Route: 065
  8. GEMCITABINE [Suspect]
     Active Substance: GEMCITABINE
     Route: 065
  9. IRINOTECAN [Suspect]
     Active Substance: IRINOTECAN
     Indication: Ductal adenocarcinoma of pancreas
  10. IRINOTECAN [Suspect]
     Active Substance: IRINOTECAN
     Route: 065
  11. IRINOTECAN [Suspect]
     Active Substance: IRINOTECAN
     Route: 065
  12. IRINOTECAN [Suspect]
     Active Substance: IRINOTECAN
  13. OXALIPLATIN [Suspect]
     Active Substance: OXALIPLATIN
     Indication: Ductal adenocarcinoma of pancreas
  14. OXALIPLATIN [Suspect]
     Active Substance: OXALIPLATIN
     Route: 065
  15. OXALIPLATIN [Suspect]
     Active Substance: OXALIPLATIN
     Route: 065
  16. OXALIPLATIN [Suspect]
     Active Substance: OXALIPLATIN
  17. CAPECITABINE [Suspect]
     Active Substance: CAPECITABINE
     Indication: Ductal adenocarcinoma of pancreas
  18. CAPECITABINE [Suspect]
     Active Substance: CAPECITABINE
     Route: 065
  19. CAPECITABINE [Suspect]
     Active Substance: CAPECITABINE
     Route: 065
  20. CAPECITABINE [Suspect]
     Active Substance: CAPECITABINE
  21. FLUOROURACIL [Suspect]
     Active Substance: FLUOROURACIL
     Indication: Ductal adenocarcinoma of pancreas
  22. FLUOROURACIL [Suspect]
     Active Substance: FLUOROURACIL
     Route: 065
  23. FLUOROURACIL [Suspect]
     Active Substance: FLUOROURACIL
     Route: 065
  24. FLUOROURACIL [Suspect]
     Active Substance: FLUOROURACIL
  25. LEUCOVORIN CALCIUM [Suspect]
     Active Substance: LEUCOVORIN CALCIUM
     Indication: Ductal adenocarcinoma of pancreas
  26. LEUCOVORIN CALCIUM [Suspect]
     Active Substance: LEUCOVORIN CALCIUM
     Route: 065
  27. LEUCOVORIN CALCIUM [Suspect]
     Active Substance: LEUCOVORIN CALCIUM
     Route: 065
  28. LEUCOVORIN CALCIUM [Suspect]
     Active Substance: LEUCOVORIN CALCIUM
  29. IRINOTECAN SUCROSOFATE [Suspect]
     Active Substance: IRINOTECAN SUCROSOFATE
     Indication: Ductal adenocarcinoma of pancreas
  30. IRINOTECAN SUCROSOFATE [Suspect]
     Active Substance: IRINOTECAN SUCROSOFATE
     Route: 065
  31. IRINOTECAN SUCROSOFATE [Suspect]
     Active Substance: IRINOTECAN SUCROSOFATE
     Route: 065
  32. IRINOTECAN SUCROSOFATE [Suspect]
     Active Substance: IRINOTECAN SUCROSOFATE

REACTIONS (2)
  - Disease progression [Fatal]
  - Metastases to lung [Unknown]

NARRATIVE: CASE EVENT DATE: 20240201
